FAERS Safety Report 9813414 (Version 1)
Quarter: 2014Q1

REPORT INFORMATION
  Report Type: Spontaneous
  Country: GB (occurrence: GB)
  Receive Date: 20140113
  Receipt Date: 20140113
  Transmission Date: 20141002
  Serious: Yes (Hospitalization)
  Sender: FDA-Public Use
  Company Number: GB-TEVA-455443ISR

PATIENT
  Age: 88 Year
  Sex: Female

DRUGS (11)
  1. TERBINAFINE [Suspect]
     Indication: FUNGAL INFECTION
     Dosage: 250 MILLIGRAM DAILY;
     Route: 048
     Dates: start: 20131219
  2. PARACETAMOL [Concomitant]
     Dosage: 4 GRAM DAILY; 1G QDS PRN
     Route: 048
  3. DIPROBASE [Concomitant]
     Dosage: 3 DOSAGE FORMS DAILY;
     Route: 061
  4. E45 [Concomitant]
     Dosage: 2 DOSAGE FORMS DAILY;
     Route: 061
  5. MICONAZOLE [Concomitant]
     Dosage: 3 DOSAGE FORMS DAILY;
     Route: 061
  6. PERMETHRIN [Concomitant]
     Dosage: 2 DOSAGE FORMS DAILY;
  7. METFORMIN [Concomitant]
     Dosage: 1000 MILLIGRAM DAILY; FORM OF ADMIN: ORAL POWDER
     Route: 048
  8. SIMVASTATIN [Concomitant]
     Dosage: 40 MILLIGRAM DAILY; 40MG ON
     Route: 048
  9. ASPIRIN [Concomitant]
     Dosage: 75 MILLIGRAM DAILY;
     Route: 048
  10. ENALAPRIL [Concomitant]
     Dosage: 2.5 MILLIGRAM DAILY;
     Route: 048
  11. FLUCLOXACILLIN [Concomitant]
     Dosage: 2000 MILLIGRAM DAILY;
     Route: 048
     Dates: start: 20131217

REACTIONS (4)
  - Rash generalised [Unknown]
  - Excoriation [Unknown]
  - Erythema [Unknown]
  - Dry skin [Unknown]
